FAERS Safety Report 10356818 (Version 1)
Quarter: 2014Q3

REPORT INFORMATION
  Report Type: Report from Study
  Country: JP (occurrence: JP)
  Receive Date: 20140801
  Receipt Date: 20140801
  Transmission Date: 20150326
  Serious: Yes (Hospitalization)
  Sender: FDA-Public Use
  Company Number: PHHY2014JP092458

PATIENT
  Age: 44 Year
  Sex: Male

DRUGS (16)
  1. NEORAL [Concomitant]
     Active Substance: CYCLOSPORINE
     Dosage: 325 MG, UNK
     Route: 048
  2. CERTICAN [Suspect]
     Active Substance: EVEROLIMUS
     Dosage: 2.5 MG, DAILY
     Route: 048
     Dates: start: 20100517, end: 20100714
  3. NEORAL [Concomitant]
     Active Substance: CYCLOSPORINE
     Indication: HEART TRANSPLANT
     Dosage: 450 MG, UNK
     Route: 048
     Dates: start: 20091224
  4. CERTICAN [Suspect]
     Active Substance: EVEROLIMUS
     Indication: HEART TRANSPLANT
     Dosage: 1.5 MG, DAILY
     Route: 048
     Dates: start: 20100428, end: 20100430
  5. CERTICAN [Suspect]
     Active Substance: EVEROLIMUS
     Dosage: 2 MG, DAILY
     Route: 048
     Dates: start: 20100920
  6. NEORAL [Concomitant]
     Active Substance: CYCLOSPORINE
     Dosage: 250 MG, UNK
     Route: 048
  7. BASEN//VOGLIBOSE [Concomitant]
     Active Substance: VOGLIBOSE
     Dosage: 0.6 MG, UNK
     Route: 048
     Dates: start: 20080410, end: 20120322
  8. CERTICAN [Suspect]
     Active Substance: EVEROLIMUS
     Dosage: 2.5 MG, DAILY
     Route: 048
     Dates: start: 20100501, end: 20100511
  9. CERTICAN [Suspect]
     Active Substance: EVEROLIMUS
     Dosage: 2 MG, DAILY
     Route: 048
     Dates: start: 20100511, end: 20100516
  10. NEORAL [Concomitant]
     Active Substance: CYCLOSPORINE
     Dosage: 400 MG, UNK
     Route: 048
  11. NEORAL [Concomitant]
     Active Substance: CYCLOSPORINE
     Dosage: 250 MG, UNK
     Route: 048
  12. CELLCEPT [Concomitant]
     Active Substance: MYCOPHENOLATE MOFETIL\MYCOPHENOLATE MOFETIL HYDROCHLORIDE
     Indication: HEART TRANSPLANT
     Dosage: 250 MG, UNK
     Route: 048
     Dates: start: 20100428, end: 20100506
  13. NEORAL [Concomitant]
     Active Substance: CYCLOSPORINE
     Dosage: 300 MG, UNK
     Route: 048
  14. NEORAL [Concomitant]
     Active Substance: CYCLOSPORINE
     Dosage: 275 MG, UNK
     Route: 048
  15. ADRENAL CORTEX PREPARATIONS [Concomitant]
     Active Substance: UNSPECIFIED INGREDIENT
     Indication: HEART TRANSPLANT
     Dosage: 2.5 MG, UNK
     Route: 048
     Dates: start: 20100428, end: 20120210
  16. CERTICAN [Suspect]
     Active Substance: EVEROLIMUS
     Dosage: 2.75 MG, DAILY
     Route: 048
     Dates: start: 20100714

REACTIONS (13)
  - Gamma-glutamyltransferase increased [Unknown]
  - Monocyte count increased [Unknown]
  - Glycosylated haemoglobin increased [Unknown]
  - Blood alkaline phosphatase increased [Unknown]
  - Red blood cell count decreased [Unknown]
  - Glucose urine present [Unknown]
  - Lymphocyte count decreased [Unknown]
  - White blood cell count decreased [Unknown]
  - C-reactive protein increased [Unknown]
  - Eosinophil count increased [Unknown]
  - Blood cholesterol increased [Unknown]
  - Haematocrit decreased [Unknown]
  - Lip oedema [Recovered/Resolved]

NARRATIVE: CASE EVENT DATE: 20100713
